FAERS Safety Report 7252663-3 (Version None)
Quarter: 2011Q1

REPORT INFORMATION
  Report Type: 
  Country: None (occurrence: None)
  Receive Date: 20110129
  Receipt Date: 20100419
  Transmission Date: 20110831
  Serious: No
  Sender: FDA-Public Use
  Company Number: US-ABBOTT-10P-163-0639335-00

PATIENT
  Sex: Male
  Weight: 70.37 kg

DRUGS (3)
  1. MUSCLE RELAXANT [Concomitant]
     Indication: BACK DISORDER
  2. HUMIRA [Suspect]
     Indication: RHEUMATOID ARTHRITIS
     Route: 058
     Dates: start: 20100326
  3. ARTHOTECH [Concomitant]
     Indication: ANTIINFLAMMATORY THERAPY

REACTIONS (3)
  - MUSCLE TIGHTNESS [None]
  - BACK PAIN [None]
  - MUSCLE SPASMS [None]
